FAERS Safety Report 20577187 (Version 1)
Quarter: 2022Q1

REPORT INFORMATION
  Report Type: Spontaneous
  Country: AR (occurrence: None)
  Receive Date: 20220308
  Receipt Date: 20220308
  Transmission Date: 20220424
  Serious: Yes (unspecified)
  Sender: FDA-Public Use
  Company Number: None

PATIENT
  Age: 51 Year
  Sex: Male
  Weight: 95 kg

DRUGS (1)
  1. CARVEDILOL [Suspect]
     Active Substance: CARVEDILOL

REACTIONS (16)
  - Presyncope [None]
  - Dyspnoea [None]
  - Chest pain [None]
  - Heart rate irregular [None]
  - Dysphagia [None]
  - Fatigue [None]
  - Asthenia [None]
  - Dizziness [None]
  - Visual impairment [None]
  - Arthralgia [None]
  - Insomnia [None]
  - Hypoaesthesia [None]
  - Paraesthesia [None]
  - Vision blurred [None]
  - Panic attack [None]
  - Anxiety [None]

NARRATIVE: CASE EVENT DATE: 20220308
